FAERS Safety Report 5930572-7 (Version None)
Quarter: 2008Q4

REPORT INFORMATION
  Report Type: 
  Country: None (occurrence: None)
  Receive Date: 20081022
  Receipt Date: 20081006
  Transmission Date: 20090506
  Serious: Yes (Hospitalization)
  Sender: FDA-Public Use
  Company Number: 2008002627

PATIENT
  Age: 80 Year
  Sex: Female
  Weight: 70 kg

DRUGS (2)
  1. MACUGEN [Suspect]
     Indication: MACULAR DEGENERATION
     Dosage: (0.3 MG, Q6W), INTRA-VITREAL
     Dates: start: 20080617, end: 20080909
  2. FLOXAL [Concomitant]

REACTIONS (2)
  - VITREOUS DISORDER [None]
  - VITRITIS [None]
